FAERS Safety Report 10595004 (Version 2)
Quarter: 2014Q4

REPORT INFORMATION
  Report Type: Spontaneous
  Country: US (occurrence: US)
  Receive Date: 20141120
  Receipt Date: 20141212
  Transmission Date: 20150529
  Serious: No
  Sender: FDA-Public Use
  Company Number: US-BIOGENIDEC-2014BI118800

PATIENT
  Age: 67 Year
  Sex: Female

DRUGS (6)
  1. TECFIDERA [Suspect]
     Active Substance: DIMETHYL FUMARATE
     Indication: MULTIPLE SCLEROSIS
     Route: 048
  2. NEURONTIN [Concomitant]
     Active Substance: GABAPENTIN
  3. ASPIRIN LOW DOSE [Concomitant]
     Active Substance: ASPIRIN
  4. PROVIGIL [Concomitant]
     Active Substance: MODAFINIL
  5. VESICARE [Concomitant]
     Active Substance: SOLIFENACIN SUCCINATE
  6. BACLOFEN. [Concomitant]
     Active Substance: BACLOFEN

REACTIONS (1)
  - Urinary tract infection [Recovered/Resolved]
